FAERS Safety Report 18833761 (Version 3)
Quarter: 2021Q1

REPORT INFORMATION
  Report Type: Report from Study
  Country: US (occurrence: US)
  Receive Date: 20210203
  Receipt Date: 20210310
  Transmission Date: 20210419
  Serious: Yes (Death, Hospitalization, Other)
  Sender: FDA-Public Use
  Company Number: US-TAKEDA-2021TUS005275

PATIENT
  Sex: Male
  Weight: 86 kg

DRUGS (3)
  1. COLCRYS [Suspect]
     Active Substance: COLCHICINE
     Indication: GOUT
     Dosage: 0.6 MILLIGRAM, BID
     Route: 065
  2. PENTASA [Suspect]
     Active Substance: MESALAMINE
     Dosage: 2 CAPS, BID
     Route: 048
  3. PENTASA [Suspect]
     Active Substance: MESALAMINE
     Indication: PRODUCT USED FOR UNKNOWN INDICATION
     Dosage: UNK
     Route: 065

REACTIONS (1)
  - COVID-19 [Fatal]
